FAERS Safety Report 18287264 (Version 1)
Quarter: 2020Q3

REPORT INFORMATION
  Report Type: Spontaneous
  Country: GB (occurrence: GB)
  Receive Date: 20200921
  Receipt Date: 20200921
  Transmission Date: 20201103
  Serious: Yes (Disabling)
  Sender: FDA-Public Use
  Company Number: GB-DEXPHARM-20200833

PATIENT
  Age: 50 Year
  Sex: Female

DRUGS (1)
  1. HIBITANE [Suspect]
     Active Substance: CHLORHEXIDINE
     Route: 067

REACTIONS (2)
  - Vulvovaginal pain [Recovered/Resolved]
  - Vaginal ulceration [Recovered/Resolved]

NARRATIVE: CASE EVENT DATE: 2013
